FAERS Safety Report 4536275-8 (Version None)
Quarter: 2004Q4

REPORT INFORMATION
  Report Type: 
  Country: None (occurrence: None)
  Receive Date: 20041223
  Receipt Date: 20040601
  Transmission Date: 20050328
  Serious: No
  Sender: FDA-Public Use
  Company Number: US-GLAXOSMITHKLINE-A0512863A

PATIENT
  Age: 76 Year
  Sex: Male

DRUGS (8)
  1. FLONASE [Suspect]
     Indication: EAR CONGESTION
     Dosage: 4PUFF PER DAY
     Route: 045
     Dates: start: 20040401, end: 20040526
  2. SYNTHROID [Concomitant]
  3. ALTACE [Concomitant]
  4. AMIDRONE [Concomitant]
  5. MULTIVITAMIN [Concomitant]
  6. LIPITOR [Concomitant]
  7. ZOLOFT [Concomitant]
  8. OXAZEPAM [Concomitant]

REACTIONS (1)
  - ORAL PAIN [None]
